FAERS Safety Report 6685900-4 (Version None)
Quarter: 2010Q2

REPORT INFORMATION
  Report Type: 
  Country: None (occurrence: None)
  Receive Date: 20100419
  Receipt Date: 20100409
  Transmission Date: 20101027
  Serious: Yes (Hospitalization)
  Sender: FDA-Public Use
  Company Number: PE-TEVA-230838ISR

PATIENT
  Sex: Female

DRUGS (6)
  1. METHOTREXATE [Suspect]
     Indication: RHEUMATOID ARTHRITIS
  2. ABATACEPT [Suspect]
     Indication: RHEUMATOID ARTHRITIS
     Route: 058
     Dates: start: 20090114
  3. PREDNISONE [Concomitant]
     Dates: start: 20090923
  4. CAPTOPRIL [Concomitant]
     Dates: start: 20090211
  5. CALCIUM CARBONATE [Concomitant]
     Dates: start: 20090101
  6. VITAMIN D [Concomitant]
     Dates: start: 20080601

REACTIONS (4)
  - APPENDICITIS PERFORATED [None]
  - BRADYCARDIA [None]
  - HYPOXIC ENCEPHALOPATHY [None]
  - PERITONITIS [None]
